FAERS Safety Report 5703892-9 (Version None)
Quarter: 2008Q2

REPORT INFORMATION
  Report Type: 
  Country: None (occurrence: None)
  Receive Date: 20080414
  Receipt Date: 20080403
  Transmission Date: 20081010
  Serious: Yes (Other)
  Sender: FDA-Public Use
  Company Number: US-JNJFOC-20080402009

PATIENT
  Sex: Male
  Weight: 77.11 kg

DRUGS (4)
  1. REMICADE [Suspect]
     Indication: CROHN'S DISEASE
     Route: 042
  2. OXYCODONE HCL [Concomitant]
     Indication: PAIN
  3. PROMETHAZINE [Concomitant]
     Indication: VOMITING
  4. PROMETHAZINE [Concomitant]
     Indication: NAUSEA

REACTIONS (1)
  - SURGERY [None]
